FAERS Safety Report 12155771 (Version 1)
Quarter: 2016Q1

REPORT INFORMATION
  Report Type: Spontaneous
  Country: US (occurrence: US)
  Receive Date: 20160307
  Receipt Date: 20160307
  Transmission Date: 20160526
  Serious: No
  Sender: FDA-Public Use
  Company Number: US-ASTRAZENECA-2016SE20582

PATIENT
  Age: 937 Month
  Sex: Female
  Weight: 96.2 kg

DRUGS (4)
  1. THYROXINE [Concomitant]
     Active Substance: LEVOTHYROXINE
  2. BYETTA [Suspect]
     Active Substance: EXENATIDE
     Indication: DIABETES MELLITUS
     Dosage: 250 MCG/1.2 ML,TWO TIMES A DAY
     Route: 058
     Dates: start: 2006
  3. NEXIUM [Suspect]
     Active Substance: ESOMEPRAZOLE MAGNESIUM
     Indication: GASTROOESOPHAGEAL REFLUX DISEASE
     Route: 048
     Dates: start: 2011
  4. VITAMINS NOS [Concomitant]
     Active Substance: VITAMINS

REACTIONS (7)
  - Sleep disorder [Unknown]
  - Peripheral swelling [Unknown]
  - Headache [Unknown]
  - Device defective [Unknown]
  - Drug dose omission [Unknown]
  - Intentional product misuse [Unknown]
  - Pain in extremity [Unknown]

NARRATIVE: CASE EVENT DATE: 201602
